FAERS Safety Report 23693933 (Version 1)
Quarter: 2024Q2

REPORT INFORMATION
  Report Type: Spontaneous
  Country: AU (occurrence: AU)
  Receive Date: 20240401
  Receipt Date: 20240401
  Transmission Date: 20240717
  Serious: Yes (Other)
  Sender: FDA-Public Use
  Company Number: AU-002147023-NVSC2024AU066332

PATIENT
  Age: 36 Year
  Sex: Male

DRUGS (4)
  1. OFATUMUMAB [Suspect]
     Active Substance: OFATUMUMAB
     Indication: Relapsing-remitting multiple sclerosis
     Dosage: UNK
     Route: 065
  2. OZANIMOD [Suspect]
     Active Substance: OZANIMOD
     Indication: Relapsing-remitting multiple sclerosis
     Dosage: UNK
     Route: 065
  3. OZANIMOD [Suspect]
     Active Substance: OZANIMOD
     Indication: B-cell depletion therapy
  4. METHYLPREDNISOLONE [Concomitant]
     Active Substance: METHYLPREDNISOLONE
     Indication: Product used for unknown indication
     Dosage: 1 G, TID
     Route: 042

REACTIONS (5)
  - Inflammatory bowel disease [Unknown]
  - Chest pain [Unknown]
  - Abdominal pain [Unknown]
  - Paraesthesia [Unknown]
  - Movement disorder [Unknown]
